FAERS Safety Report 13557348 (Version 1)
Quarter: 2017Q2

REPORT INFORMATION
  Report Type: Spontaneous
  Country: US (occurrence: US)
  Receive Date: 20170517
  Receipt Date: 20170517
  Transmission Date: 20170830
  Serious: Yes (Other)
  Sender: FDA-Public Use
  Company Number: None

PATIENT
  Sex: Male

DRUGS (1)
  1. STIVARGA [Suspect]
     Active Substance: REGORAFENIB
     Indication: COLON CANCER
     Dosage: 160 MG DAILY X 21 DAYS, 7 DAYS OFF PO
     Route: 048
     Dates: start: 20170227

REACTIONS (7)
  - Fatigue [None]
  - Myalgia [None]
  - Asthenia [None]
  - Mobility decreased [None]
  - Arthralgia [None]
  - Decreased appetite [None]
  - Dry skin [None]
